FAERS Safety Report 10885885 (Version 1)
Quarter: 2015Q1

REPORT INFORMATION
  Report Type: Spontaneous
  Country: US (occurrence: US)
  Receive Date: 20150304
  Receipt Date: 20150304
  Transmission Date: 20150721
  Serious: Yes (Death, Hospitalization)
  Sender: FDA-Public Use
  Company Number: US-JNJFOC-20150221159

PATIENT
  Age: 76 Year
  Sex: Male

DRUGS (9)
  1. METFORMIN [Concomitant]
     Active Substance: METFORMIN HYDROCHLORIDE
  2. CALCIUM GLUCONATE. [Concomitant]
     Active Substance: CALCIUM GLUCONATE
  3. ATENOLOL. [Concomitant]
     Active Substance: ATENOLOL
  4. PRAVASTATIN [Concomitant]
     Active Substance: PRAVASTATIN\PRAVASTATIN SODIUM
  5. IMBRUVICA [Suspect]
     Active Substance: IBRUTINIB
     Indication: CHRONIC LYMPHOCYTIC LEUKAEMIA
     Route: 048
     Dates: start: 20140220, end: 20141208
  6. LODIPINE [Concomitant]
  7. IRON SULFATE [Concomitant]
     Active Substance: FERROUS SULFATE ANHYDROUS
  8. ALLOPURINOL. [Concomitant]
     Active Substance: ALLOPURINOL
  9. NEUPOGEN [Concomitant]
     Active Substance: FILGRASTIM

REACTIONS (4)
  - Hypotension [Unknown]
  - Pyrexia [Unknown]
  - Pancytopenia [Unknown]
  - Disease progression [Fatal]

NARRATIVE: CASE EVENT DATE: 201412
